FAERS Safety Report 24878128 (Version 1)
Quarter: 2025Q1

REPORT INFORMATION
  Report Type: Spontaneous
  Country: US (occurrence: None)
  Receive Date: 20250123
  Receipt Date: 20250123
  Transmission Date: 20250408
  Serious: Yes (Other)
  Sender: FDA-CTU
  Company Number: None

PATIENT
  Age: 40 Year
  Sex: Female
  Weight: 62.14 kg

DRUGS (1)
  1. SYNTHROID [Suspect]
     Active Substance: LEVOTHYROXINE SODIUM
     Indication: Post procedural hypothyroidism
     Dosage: FREQUENCY : DAILY;?
     Route: 048
     Dates: start: 201904, end: 202410

REACTIONS (4)
  - Diarrhoea [None]
  - Dermatitis [None]
  - Lichen planus [None]
  - Alopecia [None]

NARRATIVE: CASE EVENT DATE: 20190401
